FAERS Safety Report 10276197 (Version 1)
Quarter: 2014Q3

REPORT INFORMATION
  Report Type: Spontaneous
  Country: US (occurrence: None)
  Receive Date: 20140701
  Receipt Date: 20140701
  Transmission Date: 20150326
  Serious: No
  Sender: FDA-Public Use
  Company Number: None

PATIENT
  Age: 79 Year
  Sex: Male
  Weight: 92.1 kg

DRUGS (1)
  1. FERUMOXYTOL [Suspect]
     Active Substance: FERUMOXYTOL
     Indication: ANAEMIA
     Route: 042
     Dates: start: 20140627, end: 20140627

REACTIONS (11)
  - Cough [None]
  - Infusion related reaction [None]
  - Sinus tachycardia [None]
  - Chills [None]
  - Chest pain [None]
  - Dyspnoea [None]
  - Wheezing [None]
  - Angina pectoris [None]
  - Tremor [None]
  - Myalgia [None]
  - Arthralgia [None]

NARRATIVE: CASE EVENT DATE: 20140627
